FAERS Safety Report 9130963 (Version 3)
Quarter: 2013Q1

REPORT INFORMATION
  Report Type: Report from Study
  Country: FR (occurrence: FR)
  Receive Date: 20130301
  Receipt Date: 20130325
  Transmission Date: 20140127
  Serious: Yes (Disabling, Other)
  Sender: FDA-Public Use
  Company Number: FR-ASTRAZENECA-2013SE07841

PATIENT
  Age: 59 Year
  Sex: Female

DRUGS (8)
  1. PULMICORT RESPULES [Suspect]
     Indication: ASTHMA
     Route: 055
  2. SYMBICORT TBH [Suspect]
     Indication: ASTHMA
     Dosage: 160/4.5 MCG, TWO TIMES A DAY
     Route: 055
  3. SERETIDE DISKUS [Concomitant]
  4. BECOTIDE [Concomitant]
  5. VENTOLIN [Concomitant]
  6. BRICANYL [Concomitant]
  7. SOLUPRED [Concomitant]
  8. SALBUTAMOL [Concomitant]

REACTIONS (10)
  - Asthma [Recovering/Resolving]
  - Asthmatic crisis [Unknown]
  - Activities of daily living impaired [Recovered/Resolved]
  - Impaired work ability [Unknown]
  - Asthma [Unknown]
  - Dysgeusia [Unknown]
  - Nasopharyngitis [Unknown]
  - Sleep disorder due to a general medical condition [Unknown]
  - Intentional drug misuse [Unknown]
  - Drug dose omission [Unknown]
